FAERS Safety Report 23103085 (Version 1)
Quarter: 2023Q4

REPORT INFORMATION
  Report Type: Spontaneous
  Country: US (occurrence: None)
  Receive Date: 20231022
  Receipt Date: 20231022
  Transmission Date: 20240110
  Serious: Yes (Hospitalization)
  Sender: FDA-Public Use
  Company Number: None

PATIENT
  Age: 76 Year
  Sex: Male
  Weight: 90.2 kg

DRUGS (3)
  1. CARBIDOPA\LEVODOPA [Suspect]
     Active Substance: CARBIDOPA\LEVODOPA
     Dosage: OTHER QUANTITY : 2.5 TAB;?FREQUENCY : DAILY;?
     Route: 048
     Dates: start: 20220412, end: 20230118
  2. DONEPEZIL [Suspect]
     Active Substance: DONEPEZIL
  3. QUETIAPINE [Suspect]
     Active Substance: QUETIAPINE

REACTIONS (4)
  - Agitation [None]
  - Confusional state [None]
  - Hallucination [None]
  - Delusion [None]

NARRATIVE: CASE EVENT DATE: 20230118
